FAERS Safety Report 5518969-0 (Version None)
Quarter: 2007Q4

REPORT INFORMATION
  Report Type: 
  Country: None (occurrence: None)
  Receive Date: 20071114
  Receipt Date: 20071114
  Transmission Date: 20080405
  Serious: Yes (Hospitalization)
  Sender: FDA-Public Use
  Company Number: None

PATIENT
  Sex: Male
  Weight: 83 kg

DRUGS (2)
  1. ZYVOX [Suspect]
     Indication: CELLULITIS
     Dosage: 600 MG BID PO
     Route: 048
     Dates: start: 20071011, end: 20071023
  2. ZYVOX [Suspect]
     Indication: DRUG HYPERSENSITIVITY
     Dosage: 600 MG BID PO
     Route: 048
     Dates: start: 20071011, end: 20071023

REACTIONS (6)
  - DIARRHOEA HAEMORRHAGIC [None]
  - DIVERTICULUM [None]
  - DUODENITIS [None]
  - GASTRITIS [None]
  - GASTROINTESTINAL HAEMORRHAGE [None]
  - ILL-DEFINED DISORDER [None]
